FAERS Safety Report 20741219 (Version 4)
Quarter: 2022Q2

REPORT INFORMATION
  Report Type: Spontaneous
  Country: US (occurrence: US)
  Receive Date: 20220422
  Receipt Date: 20220518
  Transmission Date: 20220721
  Serious: Yes (Hospitalization, Other)
  Sender: FDA-Public Use
  Company Number: US-PFIZER INC-202200583818

PATIENT
  Age: 64 Year
  Sex: Female

DRUGS (8)
  1. DILANTIN [Suspect]
     Active Substance: PHENYTOIN
     Indication: Seizure
     Dosage: 300 MG, 1X/DAY (EVERY NIGHT)
     Route: 048
     Dates: start: 1992
  2. DILANTIN [Suspect]
     Active Substance: PHENYTOIN
     Dosage: 300 MG
     Dates: start: 20110203
  3. ALEVE [Concomitant]
     Active Substance: NAPROXEN SODIUM
     Dosage: UNK
  4. KEPPRA [Concomitant]
     Active Substance: LEVETIRACETAM
     Indication: Seizure
     Dosage: UNK [750 X 2 DAY]
     Dates: start: 2011
  5. KEPPRA [Concomitant]
     Active Substance: LEVETIRACETAM
     Dosage: UNK, 1X/DAY [750 X A DAY]
     Dates: start: 2011
  6. MOTIN [DOMPERIDONE] [Concomitant]
     Dosage: UNK
  7. ADVIL [Concomitant]
     Active Substance: IBUPROFEN
     Dosage: UNK
  8. GOODYS [Concomitant]
     Active Substance: ACETAMINOPHEN\ASPIRIN\CAFFEINE
     Dosage: UNK

REACTIONS (24)
  - Cerebral atrophy [Not Recovered/Not Resolved]
  - Suicidal ideation [Unknown]
  - Ankle fracture [Unknown]
  - Chronic hepatitis C [Unknown]
  - Poisoning [Unknown]
  - Hypothyroidism [Unknown]
  - Stevens-Johnson syndrome [Unknown]
  - Dental caries [Unknown]
  - Gait disturbance [Not Recovered/Not Resolved]
  - Dysphagia [Not Recovered/Not Resolved]
  - Muscle disorder [Unknown]
  - Eye disorder [Unknown]
  - Skin discolouration [Unknown]
  - Butterfly rash [Unknown]
  - Fatigue [Unknown]
  - Memory impairment [Unknown]
  - Communication disorder [Unknown]
  - Slow speech [Not Recovered/Not Resolved]
  - Intervertebral disc degeneration [Unknown]
  - Body height decreased [Unknown]
  - Pain in extremity [Unknown]
  - Back pain [Unknown]
  - Feeling abnormal [Unknown]
  - Kyphosis [Unknown]

NARRATIVE: CASE EVENT DATE: 20060101
